FAERS Safety Report 8231589-2 (Version None)
Quarter: 2012Q1

REPORT INFORMATION
  Report Type: 
  Country: None (occurrence: None)
  Receive Date: 20120320
  Receipt Date: 20120315
  Transmission Date: 20120608
  Serious: Yes (Hospitalization)
  Sender: FDA-Public Use
  Company Number: 2012-ES-0001

PATIENT
  Age: 78 Year
  Sex: Male

DRUGS (2)
  1. FENTANYL-100 [Suspect]
     Indication: MUSCULOSKELETAL PAIN
     Dosage: TRANSDERMAL
     Route: 062
  2. FENTANYL CITRATE [Suspect]
     Indication: BREAKTHROUGH PAIN
     Dosage: 400 TO 600 MCG 5-6X PER DAY OROMUCOSAL USE
     Dates: start: 20100101

REACTIONS (11)
  - BACK PAIN [None]
  - JOINT RANGE OF MOTION DECREASED [None]
  - DISCOMFORT [None]
  - INSOMNIA [None]
  - CONDITION AGGRAVATED [None]
  - THERAPEUTIC PRODUCT INEFFECTIVE [None]
  - IRRITABILITY [None]
  - ANXIETY [None]
  - DRUG DEPENDENCE [None]
  - CARCINOID TUMOUR PULMONARY [None]
  - DRUG TOLERANCE INCREASED [None]
